FAERS Safety Report 13079532 (Version 1)
Quarter: 2017Q1

REPORT INFORMATION
  Report Type: Spontaneous
  Country: DE (occurrence: DE)
  Receive Date: 20170103
  Receipt Date: 20170103
  Transmission Date: 20170428
  Serious: Yes (Congenital Anomaly, Other)
  Sender: FDA-Public Use
  Company Number: DE-ACCORD-046935

PATIENT
  Age: 1 Day
  Sex: Female
  Weight: 1.15 kg

DRUGS (22)
  1. DAUNORUBICIN [Suspect]
     Active Substance: DAUNORUBICIN
     Indication: ACUTE PROMYELOCYTIC LEUKAEMIA
     Dosage: 120MG/D (120-0-0)/ IN TOTAL  900MG. INDUCTION 16 2/7  - 16 4/7. CONSOLIDATION I: 19.-21.4. CONSO
     Route: 064
     Dates: start: 20160308, end: 20160530
  2. DIFLUCAN [Suspect]
     Active Substance: FLUCONAZOLE
     Indication: ANTIFUNGAL PROPHYLAXIS
     Dosage: 400 MG/D (400-0-0 MG) / DISCUSSED AS ALTERNATIVE TO NOXAFIL. PLANNED FROM MARCH, 18TH.
     Route: 064
  3. VOMEX A [Concomitant]
     Active Substance: DIMENHYDRINATE
     Indication: PROPHYLAXIS OF NAUSEA AND VOMITING
     Dosage: PERHAPS LONGER THERAPY
     Route: 064
     Dates: start: 20160308, end: 20160317
  4. CIPROFLOXACIN. [Concomitant]
     Active Substance: CIPROFLOXACIN
     Indication: ANTIBIOTIC PROPHYLAXIS
     Dosage: WAS PLANNED IF NEUTROPHILS ARE {500/MCL
     Route: 064
  5. PROGESTAN [Concomitant]
     Active Substance: PROGESTERONE
     Indication: PROPHYLAXIS OF ABORTION
     Dosage: 200 MG/D
     Route: 064
     Dates: start: 20151115, end: 20160317
  6. LEVOTHYROXINE. [Concomitant]
     Active Substance: LEVOTHYROXINE
     Indication: HYPOTHYROIDISM
     Dosage: 75 MCG/DAY / UNTIL THE END OF PREGNANCY
     Route: 064
     Dates: start: 20151115, end: 20160317
  7. NATRIUMHYDROGENCARBONAT [Concomitant]
     Active Substance: SODIUM BICARBONATE
     Indication: URINE ALKALINISATION THERAPY
     Dosage: URINE PH WAS AIMED TO BE }7.4. UNTIL WHEN??
     Route: 064
     Dates: start: 20160308, end: 20160317
  8. MCP [Concomitant]
     Active Substance: METOCLOPRAMIDE HYDROCHLORIDE
     Indication: PROPHYLAXIS OF NAUSEA AND VOMITING
     Dosage: ON DEMAND
     Route: 064
  9. ALLOPURINOL. [Suspect]
     Active Substance: ALLOPURINOL
     Indication: ACUTE PROMYELOCYTIC LEUKAEMIA
     Route: 064
     Dates: start: 20160317, end: 20160317
  10. ZOFRAN [Concomitant]
     Active Substance: ONDANSETRON HYDROCHLORIDE
     Indication: PROPHYLAXIS OF NAUSEA AND VOMITING
     Dosage: 24 MG/D
     Route: 064
  11. NOXAFIL [Suspect]
     Active Substance: POSACONAZOLE
     Indication: ANTIFUNGAL PROPHYLAXIS
     Dosage: 600 MG/D (200-200-200) / WAS PLANNED FOR MARCH, 23RD. ALTERNATIVELY DISCUSSED DRUG: DIFLUCAN. FROM
     Route: 064
  12. MAGNESIUM VERLA [Concomitant]
     Active Substance: MAGNESIUM
     Indication: PROPHYLAXIS OF ABORTION
     Route: 064
     Dates: start: 20160317, end: 20160317
  13. COTRIM FORTE [Concomitant]
     Active Substance: SULFAMETHOXAZOLE\TRIMETHOPRIM
     Indication: ANTIFUNGAL PROPHYLAXIS
     Dosage: 800 MG/D (3X/WK)  / 160 MG/D (3X/WK)
     Route: 064
  14. ACICLOVIR [Concomitant]
     Active Substance: ACYCLOVIR
     Indication: ANTIVIRAL PROPHYLAXIS
     Dosage: 800 MG/D/
     Route: 064
     Dates: start: 20160308, end: 20160317
  15. PANTOZOL [Concomitant]
     Active Substance: PANTOPRAZOLE SODIUM
     Indication: GASTRITIS PROPHYLAXIS
     Dosage: 40 MG/D (1-0-0) / LATER ORALLY.
     Route: 064
     Dates: start: 20160308, end: 20160317
  16. PROGYNOVA 21 [Concomitant]
     Indication: PROPHYLAXIS OF ABORTION
     Dosage: 2 MG/D
     Route: 064
     Dates: start: 20151115, end: 20160317
  17. VESANOID [Suspect]
     Active Substance: TRETINOIN
     Indication: ACUTE PROMYELOCYTIC LEUKAEMIA
     Dosage: 90 MG/D
     Route: 064
     Dates: start: 20160308, end: 20160530
  18. ROCEPHIN [Concomitant]
     Active Substance: CEFTRIAXONE SODIUM
     Indication: ANTIBIOTIC PROPHYLAXIS
     Dosage: 2000 [MG/D (1-0-0) ]/ UNTIL WHEN?
     Route: 064
     Dates: start: 20160308, end: 20160317
  19. CYTARABINE/CYTARABINE HYDROCHLORIDE/CYTARABINE OCFOSFATE [Suspect]
     Active Substance: CYTARABINE
     Indication: ACUTE PROMYELOCYTIC LEUKAEMIA
     Dosage: 400 MG/D / TOTAL?DOSE 2800 MG
     Route: 064
     Dates: start: 20160308, end: 20160314
  20. AMPHO-MORONAL [Concomitant]
     Active Substance: AMPHOTERICIN B
     Indication: ANTIFUNGAL PROPHYLAXIS
     Dosage: SUSPENSION
     Route: 064
     Dates: start: 20160308, end: 20160317
  21. CLEXANE [Concomitant]
     Active Substance: ENOXAPARIN SODIUM
     Indication: THROMBOSIS PROPHYLAXIS
     Dosage: TERMINATED BEFORE WEEK 17 4/7
     Route: 064
  22. BETAMETHASONE. [Concomitant]
     Active Substance: BETAMETHASONE
     Indication: MATERNAL THERAPY TO ENHANCE FOETAL LUNG MATURITY
     Route: 064

REACTIONS (9)
  - Foetal exposure during pregnancy [Unknown]
  - Patent ductus arteriosus [Recovered/Resolved]
  - Premature baby [Recovering/Resolving]
  - Maternal drugs affecting foetus [None]
  - Thrombocytosis [Recovered/Resolved]
  - Apgar score low [None]
  - Small for dates baby [Not Recovered/Not Resolved]
  - Bone disorder [Not Recovered/Not Resolved]
  - Caesarean section [None]

NARRATIVE: CASE EVENT DATE: 20160630
